FAERS Safety Report 26114513 (Version 2)
Quarter: 2025Q4

REPORT INFORMATION
  Report Type: Spontaneous
  Country: EU (occurrence: EU)
  Receive Date: 20251202
  Receipt Date: 20251221
  Transmission Date: 20260118
  Serious: Yes (Life-Threatening, Hospitalization)
  Sender: JOHNSON AND JOHNSON
  Company Number: None

PATIENT
  Age: 69 Year
  Sex: Female
  Weight: 46 kg

DRUGS (10)
  1. RYBREVANT [Suspect]
     Active Substance: AMIVANTAMAB-VMJW
     Indication: Lung adenocarcinoma stage IV
     Route: 042
     Dates: start: 20251002, end: 20251002
  2. RYBREVANT [Suspect]
     Active Substance: AMIVANTAMAB-VMJW
     Route: 042
     Dates: start: 20251003, end: 20251003
  3. RYBREVANT [Suspect]
     Active Substance: AMIVANTAMAB-VMJW
     Dosage: LOWER STEP 75% OF THE TOTAL DOSE WITH INFUSION RATE SUITABLE FOR 85ML/H
     Route: 042
     Dates: start: 20251017, end: 20251017
  4. CARBOPLATIN [Suspect]
     Active Substance: CARBOPLATIN
     Indication: Lung adenocarcinoma stage IV
  5. PEMETREXED [Suspect]
     Active Substance: PEMETREXED
     Indication: Lung adenocarcinoma stage IV
  6. INNOHEP [Concomitant]
     Active Substance: TINZAPARIN SODIUM
     Indication: Product used for unknown indication
     Dates: start: 202509
  7. TINZAPARIN SODIUM [Concomitant]
     Active Substance: TINZAPARIN SODIUM
     Indication: Product used for unknown indication
  8. AFATINIB [Concomitant]
     Active Substance: AFATINIB
     Indication: Product used for unknown indication
  9. OSIMERTINIB [Concomitant]
     Active Substance: OSIMERTINIB
     Indication: Product used for unknown indication
  10. LASIX [Concomitant]
     Active Substance: FUROSEMIDE
     Indication: Blood pressure measurement

REACTIONS (4)
  - Dyspnoea [Recovering/Resolving]
  - Cardiac tamponade [Recovered/Resolved with Sequelae]
  - Pancytopenia [Recovering/Resolving]
  - Status epilepticus [Recovering/Resolving]

NARRATIVE: CASE EVENT DATE: 20251002
